FAERS Safety Report 6016051-X (Version None)
Quarter: 2008Q4

REPORT INFORMATION
  Report Type: 
  Country: None (occurrence: None)
  Receive Date: 20081222
  Receipt Date: 20081208
  Transmission Date: 20090506
  Serious: Yes (Hospitalization, Other)
  Sender: FDA-Public Use
  Company Number: BE-MERCK-0812BEL00004

PATIENT
  Age: 58 Year
  Sex: Female

DRUGS (17)
  1. VYTORIN [Suspect]
     Indication: HYPERCHOLESTEROLAEMIA
     Route: 048
  2. MYCOPHENOLATE SODIUM [Concomitant]
     Indication: RENAL TRANSPLANT
     Route: 048
     Dates: start: 20061225
  3. CYCLOSPORINE [Concomitant]
     Indication: RENAL TRANSPLANT
     Route: 048
     Dates: start: 20071220
  4. FUROSEMIDE [Concomitant]
     Route: 065
  5. CALCIUM CARBONATE [Concomitant]
     Route: 048
  6. CLOPIDOGREL BISULFATE [Concomitant]
     Route: 048
  7. ASPIRIN [Concomitant]
     Route: 048
  8. ATENOLOL [Concomitant]
     Route: 048
  9. MOXONIDINE [Concomitant]
     Route: 048
  10. ALLOPURINOL [Concomitant]
     Route: 048
  11. LEVOTHYROXINE SODIUM [Concomitant]
     Route: 048
  12. ESCITALOPRAM OXALATE [Concomitant]
     Route: 048
  13. LORMETAZEPAM [Concomitant]
     Route: 048
  14. METHYLPREDNISOLONE [Concomitant]
     Route: 048
  15. LERCANIDIPINE HYDROCHLORIDE [Concomitant]
     Route: 048
  16. RAMIPRIL [Concomitant]
     Route: 048
  17. REPAGLINIDE [Concomitant]
     Route: 048

REACTIONS (8)
  - ANOREXIA [None]
  - FATIGUE [None]
  - HEPATIC ENZYME INCREASED [None]
  - HYPOGLYCAEMIA [None]
  - MALAISE [None]
  - MYALGIA [None]
  - RHABDOMYOLYSIS [None]
  - SYNCOPE [None]
